FAERS Safety Report 20965961 (Version 4)
Quarter: 2022Q3

REPORT INFORMATION
  Report Type: Spontaneous
  Country: US (occurrence: US)
  Receive Date: 20220616
  Receipt Date: 20220812
  Transmission Date: 20221027
  Serious: No
  Sender: FDA-Public Use
  Company Number: US-PFIZER INC-PV202200002214

PATIENT

DRUGS (1)
  1. THROMBIN-JMI [Suspect]
     Active Substance: THROMBIN
     Dosage: UNK

REACTIONS (2)
  - Drug ineffective [Unknown]
  - Device failure [Unknown]
